FAERS Safety Report 24367040 (Version 1)
Quarter: 2024Q3

REPORT INFORMATION
  Report Type: Spontaneous
  Country: US (occurrence: US)
  Receive Date: 20240926
  Receipt Date: 20240926
  Transmission Date: 20241016
  Serious: Yes (Hospitalization)
  Sender: VANDA PHARMACEUTICALS
  Company Number: US-VANDA PHARMACEUTICALS, INC-2024ILOUS001970

PATIENT
  Sex: Female

DRUGS (1)
  1. FANAPT [Suspect]
     Active Substance: ILOPERIDONE
     Indication: Bipolar disorder
     Dosage: 1 MILLIGRAM, BID
     Route: 048

REACTIONS (1)
  - Loss of consciousness [Unknown]
